FAERS Safety Report 7854387-8 (Version None)
Quarter: 2011Q3

REPORT INFORMATION
  Report Type: 
  Country: None (occurrence: None)
  Receive Date: 20110916
  Receipt Date: 20101018
  Transmission Date: 20111222
  Serious: Yes (Other)
  Sender: FDA-Public Use
  Company Number: 2010SP055772

PATIENT
  Age: 31 Year
  Sex: Female

DRUGS (3)
  1. PROZAC [Concomitant]
  2. ZOLAZEPAM [Concomitant]
  3. IMPLANON [Suspect]
     Indication: CONTRACEPTION
     Dosage: 68 MG
     Dates: start: 20090101

REACTIONS (2)
  - MENORRHAGIA [None]
  - DEPRESSION [None]
